FAERS Safety Report 24946580 (Version 1)
Quarter: 2025Q1

REPORT INFORMATION
  Report Type: Spontaneous
  Country: US (occurrence: US)
  Receive Date: 20250210
  Receipt Date: 20250210
  Transmission Date: 20250409
  Serious: No
  Sender: ROCHE
  Company Number: US-ROCHE-10000197543

PATIENT
  Sex: Female

DRUGS (7)
  1. ACTEMRA [Suspect]
     Active Substance: TOCILIZUMAB
     Indication: Rheumatoid arthritis
     Route: 058
  2. ACTEMRA [Suspect]
     Active Substance: TOCILIZUMAB
  3. AZELASTINE H SOL 0.1% [Concomitant]
  4. CALCIUM + D CHE 500-1000M [Concomitant]
  5. PROBIOTIC TBE [Concomitant]
  6. VITAMIN C TAB [Concomitant]
  7. VITAMIN D3 POW 100000UNIT [Concomitant]

REACTIONS (3)
  - Product dose omission issue [Unknown]
  - Intentional product misuse [Unknown]
  - No adverse event [Unknown]
